FAERS Safety Report 12393311 (Version 1)
Quarter: 2016Q2

REPORT INFORMATION
  Report Type: Spontaneous
  Country: US (occurrence: None)
  Receive Date: 20160520
  Receipt Date: 20160520
  Transmission Date: 20160815
  Serious: Yes (Other)
  Sender: FDA-Public Use
  Company Number: None

PATIENT
  Age: 74 Year
  Sex: Female
  Weight: 86.18 kg

DRUGS (2)
  1. JUICE PLUS [Concomitant]
     Active Substance: DIETARY SUPPLEMENT
  2. KETOCONAZOLE CREAM 2%, RX ONLY, 20 MG [Suspect]
     Active Substance: KETOCONAZOLE
     Indication: TINEA INFECTION
     Dosage: 1 20MG/G TWICE A DAY APPLIED TO A SURFACE, USUALLY THE SKIN
     Route: 061
     Dates: start: 20160329, end: 20160401

REACTIONS (6)
  - Blister [None]
  - Burning sensation [None]
  - Erythema [None]
  - Pruritus [None]
  - Wound secretion [None]
  - Peripheral swelling [None]

NARRATIVE: CASE EVENT DATE: 20160329
